FAERS Safety Report 5140601-9 (Version None)
Quarter: 2006Q4

REPORT INFORMATION
  Report Type: 
  Country: None (occurrence: None)
  Receive Date: 20061025
  Receipt Date: 20061013
  Transmission Date: 20070319
  Serious: Yes (Hospitalization)
  Sender: FDA-Public Use
  Company Number: 2006-141107-NL

PATIENT
  Age: 66 Year
  Sex: Female

DRUGS (11)
  1. MIRTAZAPINE [Suspect]
     Indication: DEPRESSION
     Dosage: 30 MG ORAL
     Route: 048
     Dates: start: 20050821, end: 20050930
  2. MIRTAZAPINE [Suspect]
     Indication: DISEASE RECURRENCE
     Dosage: 30 MG ORAL
     Route: 048
     Dates: start: 20050821, end: 20050930
  3. MORPHINE [Concomitant]
  4. MADOPAR [Concomitant]
  5. AMANTADINE SULFATE [Concomitant]
  6. ESOMEPRAZOLE MAGNESIUM [Concomitant]
  7. LORAZEPAM [Concomitant]
  8. CARVEDILOL [Concomitant]
  9. METAMIZOLE SODIUM MONOHYDRATE [Concomitant]
  10. METOLAZONE [Concomitant]
  11. SPIRONOLACTONE [Concomitant]

REACTIONS (4)
  - AGITATION [None]
  - GRAND MAL CONVULSION [None]
  - HYPERTHERMIA [None]
  - SEROTONIN SYNDROME [None]
